FAERS Safety Report 4373278-0 (Version None)
Quarter: 2004Q2

REPORT INFORMATION
  Report Type: 
  Country: None (occurrence: None)
  Receive Date: 20040608
  Receipt Date: 20040604
  Transmission Date: 20050107
  Serious: Yes (Hospitalization)
  Sender: FDA-Public Use
  Company Number: FR-GLAXOSMITHKLINE-B0334812A

PATIENT
  Age: 72 Year
  Sex: Female
  Weight: 62 kg

DRUGS (4)
  1. CEPAZINE [Suspect]
     Indication: BRONCHITIS
     Dosage: 500MG PER DAY
     Route: 048
     Dates: start: 19990202, end: 19990209
  2. VEGETOSERUM [Suspect]
     Indication: COUGH
     Route: 048
     Dates: end: 19990209
  3. ACETYLCYSTEINE [Suspect]
     Indication: BRONCHITIS
     Route: 048
     Dates: start: 19990202, end: 19990209
  4. BEFIZAL [Concomitant]
     Dosage: 400MG PER DAY
     Route: 048

REACTIONS (4)
  - AGRANULOCYTOSIS [None]
  - LYMPHOCYTE COUNT INCREASED [None]
  - PLEURISY [None]
  - PYREXIA [None]
